FAERS Safety Report 7228504-7 (Version None)
Quarter: 2011Q1

REPORT INFORMATION
  Report Type: 
  Country: None (occurrence: None)
  Receive Date: 20110117
  Receipt Date: 20110101
  Transmission Date: 20110831
  Serious: Yes (Other)
  Sender: FDA-Public Use
  Company Number: BR-RANBAXY-2011R5-40834

PATIENT

DRUGS (3)
  1. AMLODIPINE [Concomitant]
     Indication: PRODUCT USED FOR UNKNOWN INDICATION
     Dosage: 5 MG, QD
     Route: 065
  2. ANCORON [Concomitant]
     Indication: PRODUCT USED FOR UNKNOWN INDICATION
     Dosage: 100 MG, QD
     Route: 065
  3. AMOXICILLIN AND CLAVULANATE POTASSIUM [Suspect]
     Indication: PNEUMONIA
     Dosage: 500MG/125MG, TID
     Route: 048
     Dates: start: 20101229, end: 20110102

REACTIONS (7)
  - INSOMNIA [None]
  - TACHYCARDIA [None]
  - CHEST PAIN [None]
  - HALLUCINATION [None]
  - OEDEMA PERIPHERAL [None]
  - NAUSEA [None]
  - DYSPNOEA [None]
